FAERS Safety Report 21059536 (Version 1)
Quarter: 2022Q3

REPORT INFORMATION
  Report Type: Spontaneous
  Country: KR (occurrence: KR)
  Receive Date: 20220708
  Receipt Date: 20220708
  Transmission Date: 20221026
  Serious: No
  Sender: FDA-Public Use
  Company Number: KR-PFIZER INC-PV202200007319

PATIENT
  Sex: Female

DRUGS (1)
  1. GENOTROPIN [Suspect]
     Active Substance: SOMATROPIN
     Indication: Growth hormone deficiency
     Dosage: 0.4 MG, DAILY (7 TIMES/WEEK)
     Dates: end: 20220621

REACTIONS (3)
  - Drug administered in wrong device [Unknown]
  - Product communication issue [Unknown]
  - Accidental overdose [Unknown]
